FAERS Safety Report 13434080 (Version 1)
Quarter: 2017Q2

REPORT INFORMATION
  Report Type: Spontaneous
  Country: US (occurrence: US)
  Receive Date: 20170412
  Receipt Date: 20170412
  Transmission Date: 20170830
  Serious: Yes (Hospitalization)
  Sender: FDA-Public Use
  Company Number: US-NOVOPROD-539725

PATIENT
  Age: 49 Year
  Sex: Female
  Weight: 68.27 kg

DRUGS (3)
  1. NOVOLOG [Suspect]
     Active Substance: INSULIN ASPART
     Dosage: 8-10 U, TID PER MEAL
     Route: 058
     Dates: start: 201503
  2. NOVOLOG [Suspect]
     Active Substance: INSULIN ASPART
     Dosage: 20 U, TID PER MEAL
     Route: 058
     Dates: start: 201402, end: 201503
  3. NOVOLOG [Suspect]
     Active Substance: INSULIN ASPART
     Indication: TYPE 2 DIABETES MELLITUS
     Dosage: UNK
     Route: 058
     Dates: start: 2007

REACTIONS (2)
  - Blood glucose increased [Unknown]
  - Renal failure [Not Recovered/Not Resolved]

NARRATIVE: CASE EVENT DATE: 201401
